FAERS Safety Report 11115682 (Version 1)
Quarter: 2015Q2

REPORT INFORMATION
  Report Type: Spontaneous
  Country: IT (occurrence: SM)
  Receive Date: 20150515
  Receipt Date: 20150515
  Transmission Date: 20150821
  Serious: Yes (Other)
  Sender: FDA-Public Use
  Company Number: SM-CELGENE-SMR-2015052253

PATIENT
  Sex: Female

DRUGS (6)
  1. DEXAMETHASONE. [Concomitant]
     Active Substance: DEXAMETHASONE
     Indication: AMYLOIDOSIS
     Route: 065
     Dates: start: 2001
  2. DEXAMETHASONE. [Concomitant]
     Active Substance: DEXAMETHASONE
     Route: 065
     Dates: start: 2002
  3. REVLIMID [Suspect]
     Active Substance: LENALIDOMIDE
     Indication: AMYLOIDOSIS
     Route: 048
     Dates: start: 201007
  4. CYCLPHOSPAMIDE [Concomitant]
     Indication: AMYLOIDOSIS
     Route: 065
     Dates: start: 201002
  5. THALIDOMIDE CELGENE [Suspect]
     Active Substance: THALIDOMIDE
     Indication: AMYLOIDOSIS
     Route: 048
     Dates: start: 201002
  6. DEXAMETHASONE. [Concomitant]
     Active Substance: DEXAMETHASONE
     Route: 065
     Dates: start: 201002

REACTIONS (6)
  - Nephrotic syndrome [Unknown]
  - Renal failure [Unknown]
  - Hypoalbuminaemia [Unknown]
  - Asthenia [Unknown]
  - No therapeutic response [Unknown]
  - Oedema peripheral [Unknown]
